FAERS Safety Report 10353928 (Version 2)
Quarter: 2014Q3

REPORT INFORMATION
  Report Type: Spontaneous
  Country: IN (occurrence: IN)
  Receive Date: 20140731
  Receipt Date: 20140829
  Transmission Date: 20150326
  Serious: Yes (Other)
  Sender: FDA-Public Use
  Company Number: IN-JNJFOC-20140718417

PATIENT
  Age: 58 Year
  Sex: Male

DRUGS (3)
  1. TRAMADOL/PARACETAMOL [Suspect]
     Active Substance: ACETAMINOPHEN\TRAMADOL
     Indication: NEURALGIA
     Route: 048
  2. SERTRALINE [Suspect]
     Active Substance: SERTRALINE HYDROCHLORIDE
     Indication: NEURALGIA
     Route: 048
  3. PREGABALIN. [Concomitant]
     Active Substance: PREGABALIN
     Indication: NEURALGIA
     Route: 048

REACTIONS (6)
  - Bradykinesia [Recovered/Resolved]
  - Tachycardia [Recovered/Resolved]
  - Muscular weakness [Recovered/Resolved]
  - Mydriasis [Recovered/Resolved]
  - Irritability [Recovered/Resolved]
  - Serotonin syndrome [Recovered/Resolved]
